FAERS Safety Report 15730341 (Version 2)
Quarter: 2019Q1

REPORT INFORMATION
  Report Type: Spontaneous
  Country: US (occurrence: US)
  Receive Date: 20181217
  Receipt Date: 20190222
  Transmission Date: 20190417
  Serious: Yes (Other)
  Sender: FDA-Public Use
  Company Number: US-SA-2018SA336982

PATIENT
  Age: 31 Year
  Sex: Female
  Weight: 93.89 kg

DRUGS (9)
  1. NEOSAR [Concomitant]
     Active Substance: CYCLOPHOSPHAMIDE
  2. 5-FLUOROURACIL [FLUOROURACIL] [Concomitant]
     Active Substance: FLUOROURACIL
  3. TAXOTERE [Suspect]
     Active Substance: DOCETAXEL
     Indication: BREAST CANCER FEMALE
     Dosage: 150 MG, QOW
     Route: 042
     Dates: start: 20110805, end: 20110805
  4. PEGFILGRASTIM [Concomitant]
     Active Substance: PEGFILGRASTIM
     Route: 058
  5. ONDANSETRON [Concomitant]
     Active Substance: ONDANSETRON
  6. TAXOTERE [Suspect]
     Active Substance: DOCETAXEL
     Dosage: 150 MG, QOW
     Route: 042
     Dates: start: 20110921, end: 20110921
  7. DEXAMETHASONE SODIUM PHOSPHATE. [Concomitant]
     Active Substance: DEXAMETHASONE SODIUM PHOSPHATE
  8. LORAZEPAM. [Concomitant]
     Active Substance: LORAZEPAM
  9. ELLENCE [Concomitant]
     Active Substance: EPIRUBICIN HYDROCHLORIDE

REACTIONS (2)
  - Alopecia [Recovering/Resolving]
  - Psychological trauma [Unknown]

NARRATIVE: CASE EVENT DATE: 2011
